FAERS Safety Report 5168644-X (Version None)
Quarter: 2006Q4

REPORT INFORMATION
  Report Type: 
  Country: None (occurrence: None)
  Receive Date: 20061211
  Receipt Date: 20061201
  Transmission Date: 20070319
  Serious: Yes (Death, Hospitalization)
  Sender: FDA-Public Use
  Company Number: US-JNJFOC-20061200507

PATIENT
  Sex: Female

DRUGS (9)
  1. INFLIXIMAB [Suspect]
     Indication: RHEUMATOID ARTHRITIS
     Route: 042
  2. PREDNISONE TAB [Concomitant]
  3. LASIX [Concomitant]
  4. LOPRESSOR [Concomitant]
  5. POTASSIUM ACETATE [Concomitant]
  6. PEPCID [Concomitant]
  7. INSULIN [Concomitant]
  8. COMBIVENT [Concomitant]
  9. OXYGEN THERAPY [Concomitant]

REACTIONS (5)
  - DEEP VEIN THROMBOSIS [None]
  - OESOPHAGEAL CANCER METASTATIC [None]
  - RESPIRATORY ARREST [None]
  - VOCAL CORD PARALYSIS [None]
  - WOUND DEHISCENCE [None]
